FAERS Safety Report 8374093-3 (Version None)
Quarter: 2012Q2

REPORT INFORMATION
  Report Type: 
  Country: None (occurrence: None)
  Receive Date: 20120521
  Receipt Date: 20120515
  Transmission Date: 20120825
  Serious: Yes (Other)
  Sender: FDA-Public Use
  Company Number: PHHY2012GB034725

PATIENT
  Age: 68 Year
  Sex: Female

DRUGS (1)
  1. ALBUTEROL [Suspect]
     Indication: CHRONIC OBSTRUCTIVE PULMONARY DISEASE
     Dosage: 100 UG, UNK
     Dates: start: 20120419, end: 20120420

REACTIONS (6)
  - TREMOR [None]
  - DYSPNOEA [None]
  - HEART RATE INCREASED [None]
  - CHEST DISCOMFORT [None]
  - WHEEZING [None]
  - PARAESTHESIA ORAL [None]
